FAERS Safety Report 4501404-9 (Version None)
Quarter: 2004Q4

REPORT INFORMATION
  Report Type: 
  Country: None (occurrence: None)
  Receive Date: 20041110
  Receipt Date: 20041022
  Transmission Date: 20050328
  Serious: Yes (Death)
  Sender: FDA-Public Use
  Company Number: 1781-094-2

PATIENT
  Age: 76 Year
  Sex: Female
  Weight: 46 kg

DRUGS (2)
  1. VENOFER [Suspect]
     Indication: ANAEMIA
     Dosage: 100 MG IV WEEKLY
     Route: 042
     Dates: start: 20041009, end: 20041012
  2. VENOFER [Suspect]
     Indication: RENAL FAILURE CHRONIC
     Dosage: 100 MG IV WEEKLY
     Route: 042
     Dates: start: 20041009, end: 20041012

REACTIONS (9)
  - BLOOD PRESSURE INCREASED [None]
  - COMA [None]
  - DYSPNOEA [None]
  - HEART RATE INCREASED [None]
  - LETHARGY [None]
  - OEDEMA [None]
  - PULMONARY OEDEMA [None]
  - RESTLESSNESS [None]
  - WHEEZING [None]
